FAERS Safety Report 25061188 (Version 1)
Quarter: 2025Q1

REPORT INFORMATION
  Report Type: Spontaneous
  Country: GB (occurrence: GB)
  Receive Date: 20250310
  Receipt Date: 20250310
  Transmission Date: 20250409
  Serious: Yes (Hospitalization, Other)
  Sender: PFIZER
  Company Number: GB-PFM-2025-01161

PATIENT
  Age: 80 Year
  Sex: Female

DRUGS (4)
  1. ENCORAFENIB [Suspect]
     Active Substance: ENCORAFENIB
     Indication: Malignant melanoma
     Route: 065
     Dates: start: 202211, end: 202307
  2. ENCORAFENIB [Suspect]
     Active Substance: ENCORAFENIB
     Route: 065
     Dates: start: 202308, end: 202312
  3. BINIMETINIB [Suspect]
     Active Substance: BINIMETINIB
     Indication: Malignant melanoma
     Route: 065
     Dates: start: 202211, end: 202307
  4. BINIMETINIB [Suspect]
     Active Substance: BINIMETINIB
     Route: 065
     Dates: start: 202308, end: 202312

REACTIONS (6)
  - Lower gastrointestinal haemorrhage [Recovered/Resolved]
  - Melaena [Recovered/Resolved]
  - Anaemia [Recovered/Resolved]
  - Haemorrhage [Recovered/Resolved]
  - Ulcer [Recovered/Resolved]
  - Condition aggravated [Recovered/Resolved]

NARRATIVE: CASE EVENT DATE: 20230701
